FAERS Safety Report 18337462 (Version 2)
Quarter: 2020Q4

REPORT INFORMATION
  Report Type: Spontaneous
  Country: US (occurrence: US)
  Receive Date: 20201002
  Receipt Date: 20201006
  Transmission Date: 20210113
  Serious: No
  Sender: FDA-Public Use
  Company Number: US-TEVA-2020-US-1833845

PATIENT
  Age: 66 Year
  Sex: Female

DRUGS (7)
  1. COPAXONE [Suspect]
     Active Substance: GLATIRAMER ACETATE
     Indication: MULTIPLE SCLEROSIS
     Route: 058
     Dates: start: 20180205
  2. ADVIL [Concomitant]
     Active Substance: IBUPROFEN
  3. METFORMIN [Concomitant]
     Active Substance: METFORMIN HYDROCHLORIDE
  4. TYLENOL [Concomitant]
     Active Substance: ACETAMINOPHEN
  5. PRAVASTATIN. [Concomitant]
     Active Substance: PRAVASTATIN
  6. EZETIMIBE. [Concomitant]
     Active Substance: EZETIMIBE
  7. HYDROCHLOROL [Concomitant]

REACTIONS (1)
  - Muscle strain [Not Recovered/Not Resolved]
